FAERS Safety Report 23242306 (Version 1)
Quarter: 2023Q4

REPORT INFORMATION
  Report Type: Spontaneous
  Country: US (occurrence: US)
  Receive Date: 20231129
  Receipt Date: 20231129
  Transmission Date: 20240110
  Serious: No
  Sender: FDA-Public Use
  Company Number: US-GENMAB-2023-01709

PATIENT
  Age: 9 Decade
  Sex: Male

DRUGS (1)
  1. EPKINLY [Suspect]
     Active Substance: EPCORITAMAB-BYSP
     Dosage: 48 MILLIGRAM, WEEKLY (FOR PAST 6 WEEKS)
     Route: 058

REACTIONS (1)
  - Dizziness [Not Recovered/Not Resolved]
